FAERS Safety Report 6488036-0 (Version None)
Quarter: 2009Q4

REPORT INFORMATION
  Report Type: 
  Country: None (occurrence: None)
  Receive Date: 20091210
  Receipt Date: 20091208
  Transmission Date: 20100525
  Serious: Yes (Death, Other)
  Sender: FDA-Public Use
  Company Number: PHHY2009MY54170

PATIENT
  Sex: Male
  Weight: 62 kg

DRUGS (1)
  1. GLEEVEC [Suspect]
     Dosage: 600 MG DAILY
     Dates: start: 20080228, end: 20081205

REACTIONS (2)
  - DEATH [None]
  - VOMITING [None]
